FAERS Safety Report 13014409 (Version 1)
Quarter: 2016Q4

REPORT INFORMATION
  Report Type: Spontaneous
  Country: US (occurrence: US)
  Receive Date: 20161209
  Receipt Date: 20161209
  Transmission Date: 20170207
  Serious: No
  Sender: FDA-Public Use
  Company Number: US-DUSA PHARMACEUTICALS, INC.-1060631

PATIENT
  Age: 69 Year
  Sex: Female

DRUGS (5)
  1. ESTROGEN [Concomitant]
     Active Substance: ESTRONE\SUS SCROFA OVARY
  2. CRESTOR [Concomitant]
     Active Substance: ROSUVASTATIN CALCIUM
  3. BLU-U BLUE LIGHT PHOTODYNAMIC THERAPY ILLUMINATOR [Suspect]
     Active Substance: DEVICE
     Dates: start: 20160608, end: 20160608
  4. LEVULAN KERASTICK [Suspect]
     Active Substance: AMINOLEVULINIC ACID HYDROCHLORIDE
     Indication: ACTINIC KERATOSIS
     Route: 061
     Dates: start: 20160608, end: 20160608
  5. PROGESTERONE. [Concomitant]
     Active Substance: PROGESTERONE

REACTIONS (7)
  - Nausea [Recovering/Resolving]
  - Vomiting [Recovering/Resolving]
  - Eye pain [Recovering/Resolving]
  - Application site erythema [Recovering/Resolving]
  - Headache [Recovering/Resolving]
  - Application site pain [Recovering/Resolving]
  - Feeling hot [Recovering/Resolving]

NARRATIVE: CASE EVENT DATE: 20160608
